FAERS Safety Report 23610174 (Version 1)
Quarter: 2024Q1

REPORT INFORMATION
  Report Type: Spontaneous
  Country: IN (occurrence: IN)
  Receive Date: 20240308
  Receipt Date: 20240308
  Transmission Date: 20240410
  Serious: Yes (Other)
  Sender: FDA-Public Use
  Company Number: IN-SUN PHARMACEUTICAL INDUSTRIES LTD-2024R1-434790

PATIENT
  Age: 18 Month
  Sex: Female

DRUGS (3)
  1. CARBOPLATIN [Suspect]
     Active Substance: CARBOPLATIN
     Indication: Atypical teratoid/rhabdoid tumour of CNS
     Dosage: 500 MILLIGRAM/SQ. METER (D3), REPEATED EVERY 3 WEEKS FOR 4 CYCLES
     Route: 042
  2. ETOPOSIDE [Suspect]
     Active Substance: ETOPOSIDE
     Indication: Atypical teratoid/rhabdoid tumour of CNS
     Dosage: 100 MILLIGRAM/SQ. METER (D1-D3), REPEATED EVERY 3 WEEKS FOR 4 CYCLES
     Route: 042
  3. IFOSFAMIDE [Suspect]
     Active Substance: IFOSFAMIDE
     Indication: Atypical teratoid/rhabdoid tumour of CNS
     Dosage: 2 GRAM PER SQUARE METRE (D1-D3), REPEATED EVERY 3 WEEKS FOR 4 CYCLES
     Route: 042

REACTIONS (4)
  - Leukopenia [Unknown]
  - Neutropenia [Unknown]
  - Hyperintensity in brain deep nuclei [Unknown]
  - Myelopathy [Unknown]
